FAERS Safety Report 8590499-1 (Version None)
Quarter: 2012Q3

REPORT INFORMATION
  Report Type: 
  Country: None (occurrence: None)
  Receive Date: 20120813
  Receipt Date: 20120808
  Transmission Date: 20120928
  Serious: Yes (Hospitalization, Other)
  Sender: FDA-Public Use
  Company Number: US-PFIZER INC-2007088042

PATIENT
  Age: 38 Year
  Sex: Female
  Weight: 99.8 kg

DRUGS (1)
  1. DILANTIN [Suspect]
     Indication: GRAND MAL CONVULSION
     Dosage: 100 MG, 3X/DAY
     Route: 048
     Dates: start: 20010507, end: 20010529

REACTIONS (4)
  - EYE PAIN [None]
  - CONJUNCTIVITIS [None]
  - STEVENS-JOHNSON SYNDROME [None]
  - STOMATITIS [None]
